FAERS Safety Report 16267371 (Version 1)
Quarter: 2019Q2

REPORT INFORMATION
  Report Type: Spontaneous
  Country: US (occurrence: US)
  Receive Date: 20190502
  Receipt Date: 20190502
  Transmission Date: 20190711
  Serious: Yes (Hospitalization, Other)
  Sender: FDA-Public Use
  Company Number: US-009507513-1904USA012309

PATIENT
  Sex: Male

DRUGS (3)
  1. TEMODAR [Suspect]
     Active Substance: TEMOZOLOMIDE
     Dosage: 5 MILLIGRAM, ONCE DAILY
     Route: 048
     Dates: start: 201902
  2. TEMODAR [Suspect]
     Active Substance: TEMOZOLOMIDE
     Dosage: 20 MILLIGRAM, ONCE DAILY
     Route: 048
     Dates: start: 201902
  3. TEMODAR [Suspect]
     Active Substance: TEMOZOLOMIDE
     Indication: BRAIN NEOPLASM MALIGNANT
     Dosage: 100 MILLIGRAM, FREQUENCY:OTHER
     Route: 048
     Dates: start: 201902

REACTIONS (1)
  - Escherichia infection [Unknown]

NARRATIVE: CASE EVENT DATE: 2019
